FAERS Safety Report 8066955-1 (Version None)
Quarter: 2012Q1

REPORT INFORMATION
  Report Type: 
  Country: None (occurrence: None)
  Receive Date: 20120124
  Receipt Date: 20120112
  Transmission Date: 20120608
  Serious: Yes (Other)
  Sender: FDA-Public Use
  Company Number: CA-MERCK-1201USA01880

PATIENT
  Age: 84 Year
  Weight: 58 kg

DRUGS (8)
  1. ACTONEL [Suspect]
     Route: 065
  2. HORMONES (UNSPECIFIED) [Concomitant]
     Route: 065
  3. FORTEO [Concomitant]
     Route: 065
  4. PROLIA [Suspect]
     Route: 065
     Dates: end: 20110412
  5. MIACALCIN [Concomitant]
     Route: 055
  6. FOSAMAX [Suspect]
     Indication: OSTEOPOROSIS
     Route: 048
     Dates: start: 20031209
  7. DIDROCAL [Concomitant]
     Indication: OSTEOPOROSIS
     Route: 065
  8. EVISTA [Concomitant]
     Route: 065

REACTIONS (3)
  - OSTEOPOROSIS [None]
  - WRIST FRACTURE [None]
  - RENAL FAILURE [None]
